FAERS Safety Report 19081447 (Version 2)
Quarter: 2023Q4

REPORT INFORMATION
  Report Type: Report from Study
  Country: US (occurrence: US)
  Receive Date: 20210331
  Receipt Date: 20231122
  Transmission Date: 20240109
  Serious: No
  Sender: FDA-Public Use
  Company Number: US-SANOFI-00537462

PATIENT
  Age: 62 Year
  Sex: Male

DRUGS (3)
  1. DUPILUMAB [Suspect]
     Active Substance: DUPILUMAB
     Indication: Eczema
     Dosage: 300 MG, QOW
  2. DUPILUMAB [Suspect]
     Active Substance: DUPILUMAB
     Indication: Lung disorder
  3. DUPILUMAB [Suspect]
     Active Substance: DUPILUMAB
     Indication: Asthma

REACTIONS (5)
  - Injection site pain [Unknown]
  - Peripheral swelling [Unknown]
  - Weight decreased [Unknown]
  - Cough [Unknown]
  - Product use in unapproved indication [Unknown]
